FAERS Safety Report 6012813-3 (Version None)
Quarter: 2008Q4

REPORT INFORMATION
  Report Type: 
  Country: None (occurrence: None)
  Receive Date: 20081219
  Receipt Date: 20081211
  Transmission Date: 20090506
  Serious: Yes (Other)
  Sender: FDA-Public Use
  Company Number: US-JNJFOC-20081203036

PATIENT
  Age: 82 Year
  Sex: Female

DRUGS (9)
  1. HALDOL [Suspect]
     Indication: INSOMNIA
     Dosage: AT NIGHT
     Route: 048
  2. DIPHENHYDRAMINE HCL [Concomitant]
     Indication: EXTRAPYRAMIDAL DISORDER
  3. ALPRAZOLAM [Concomitant]
     Indication: ANXIETY
  4. ESCITOLOPRAM [Concomitant]
     Indication: ANOREXIA
  5. LEVOTHYROXINE SODIUM [Concomitant]
     Indication: ANOREXIA
  6. DEXAMETHASONE [Concomitant]
     Indication: ANOREXIA
  7. METHADONE HCL [Concomitant]
  8. METAPROLOL [Concomitant]
  9. AMLODIPINE [Concomitant]

REACTIONS (2)
  - DYSPHAGIA [None]
  - EXTRAPYRAMIDAL DISORDER [None]
